FAERS Safety Report 9542658 (Version 1)
Quarter: 2013Q3

REPORT INFORMATION
  Report Type: Spontaneous
  Country: US (occurrence: US)
  Receive Date: 20130923
  Receipt Date: 20130923
  Transmission Date: 20140515
  Serious: No
  Sender: FDA-Public Use
  Company Number: US-PFIZER INC-2013271124

PATIENT
  Sex: Female

DRUGS (1)
  1. PROPANOLOL HCL [Suspect]
     Indication: HYPERTENSION
     Dosage: UNK
     Route: 048
     Dates: start: 201301, end: 2013

REACTIONS (2)
  - Local swelling [Recovered/Resolved]
  - Local swelling [Recovered/Resolved]
